FAERS Safety Report 15844930 (Version 2)
Quarter: 2019Q1

REPORT INFORMATION
  Report Type: Spontaneous
  Country: US (occurrence: US)
  Receive Date: 20190119
  Receipt Date: 20190303
  Transmission Date: 20190417
  Serious: No
  Sender: FDA-Public Use
  Company Number: US-UNITED THERAPEUTICS-UNT-2019-000662

PATIENT
  Age: 35 Year
  Sex: Female
  Weight: 90.7 kg

DRUGS (3)
  1. LETAIRIS [Concomitant]
     Active Substance: AMBRISENTAN
     Indication: PRODUCT USED FOR UNKNOWN INDICATION
     Route: 065
  2. TYVASO [Suspect]
     Active Substance: TREPROSTINIL
     Indication: PULMONARY ARTERIAL HYPERTENSION
     Dosage: 60-120 MICROGRAMS, QID
     Dates: start: 20170821
  3. TYVASO [Suspect]
     Active Substance: TREPROSTINIL
     Dosage: 18-54 MICROGRAMS, QID

REACTIONS (7)
  - Chest pain [Unknown]
  - Palpitations [Unknown]
  - Nasopharyngitis [Unknown]
  - Off label use [Unknown]
  - Cough [Unknown]
  - Fluid retention [Unknown]
  - Dizziness [Unknown]

NARRATIVE: CASE EVENT DATE: 20190109
